FAERS Safety Report 8137785-7 (Version None)
Quarter: 2012Q1

REPORT INFORMATION
  Report Type: 
  Country: None (occurrence: None)
  Receive Date: 20120215
  Receipt Date: 20120208
  Transmission Date: 20120608
  Serious: Yes (Hospitalization)
  Sender: FDA-Public Use
  Company Number: US-BAYER-2011-063023

PATIENT
  Age: 37 Year
  Sex: Female
  Weight: 68.027 kg

DRUGS (14)
  1. YASMIN [Suspect]
     Dosage: UNK
     Dates: start: 20040101, end: 20090101
  2. DROSPIRENONE AND ETHINYL ESTRADIOL [Suspect]
     Dosage: UNK
     Dates: start: 20040101, end: 20090101
  3. YAZ [Suspect]
     Dosage: UNK
     Dates: start: 20040101, end: 20090101
  4. ALLOPURINOL [Concomitant]
     Dosage: 100 MG, UNK
     Route: 048
  5. ALPRAZOLAM [Concomitant]
     Dosage: 1 MG, UNK
  6. CYMBALTA [Concomitant]
     Dosage: 60 MG, UNK
     Route: 048
     Dates: start: 20080101, end: 20100101
  7. AMITRIPTYLINE HCL [Concomitant]
     Dosage: 50 MG, UNK
     Route: 048
  8. HYDROCHLOROTHIAZIDE [Concomitant]
     Dosage: UNK
     Route: 048
     Dates: start: 19990101
  9. OMEPRAZOLE [Concomitant]
     Dosage: 20 MG, UNK
     Route: 048
  10. VICODIN [Concomitant]
     Dosage: 5/500 MG
  11. MECLIZINE [Concomitant]
     Dosage: 25 MG, UNK
  12. GABAPENTIN [Concomitant]
     Dosage: 300 MG, UNK
     Route: 048
  13. VITAMIN TAB [Concomitant]
     Route: 048
  14. SUCRALFATE [Concomitant]
     Dosage: 1 MG, UNK

REACTIONS (4)
  - CHOLECYSTECTOMY [None]
  - INJURY [None]
  - PAIN [None]
  - CHOLECYSTITIS CHRONIC [None]
